FAERS Safety Report 15492917 (Version 4)
Quarter: 2019Q2

REPORT INFORMATION
  Report Type: Spontaneous
  Country: US (occurrence: US)
  Receive Date: 20181012
  Receipt Date: 20190607
  Transmission Date: 20190711
  Serious: Yes (Other)
  Sender: FDA-Public Use
  Company Number: US-ASTRAZENECA-2018SF30361

PATIENT
  Age: 53 Year
  Sex: Female
  Weight: 131.5 kg

DRUGS (25)
  1. SIMVASTATIN. [Concomitant]
     Active Substance: SIMVASTATIN
  2. ONGLYZA [Concomitant]
     Active Substance: SAXAGLIPTIN HYDROCHLORIDE
  3. EXEMESTANE. [Concomitant]
     Active Substance: EXEMESTANE
  4. EXEMESTANE. [Concomitant]
     Active Substance: EXEMESTANE
  5. PREDNISONE. [Concomitant]
     Active Substance: PREDNISONE
  6. MELOXICAM. [Concomitant]
     Active Substance: MELOXICAM
  7. NEXIUM [Suspect]
     Active Substance: ESOMEPRAZOLE MAGNESIUM
     Route: 048
     Dates: start: 1999, end: 2017
  8. TRAMADOL. [Concomitant]
     Active Substance: TRAMADOL
  9. CITALOPRAM [Concomitant]
     Active Substance: CITALOPRAM HYDROBROMIDE
  10. VITAMIN D2 [Concomitant]
     Active Substance: ERGOCALCIFEROL
  11. PRILOSEC [Suspect]
     Active Substance: OMEPRAZOLE MAGNESIUM
     Route: 048
     Dates: start: 1999, end: 2017
  12. AZITHROMYCIN ANHYDROUS. [Concomitant]
     Active Substance: AZITHROMYCIN ANHYDROUS
  13. HYDROXYZINE [Concomitant]
     Active Substance: HYDROXYZINE HYDROCHLORIDE
  14. FAMOTIDINE. [Concomitant]
     Active Substance: FAMOTIDINE
  15. DIOVAN [Concomitant]
     Active Substance: VALSARTAN
  16. NAPROXEN. [Concomitant]
     Active Substance: NAPROXEN
  17. VELTASSA [Concomitant]
     Active Substance: PATIROMER
  18. HYDROCODONE-ACETAMINOPHEN [Concomitant]
     Active Substance: ACETAMINOPHEN\HYDROCODONE
  19. PRILOSEC [Suspect]
     Active Substance: OMEPRAZOLE MAGNESIUM
     Route: 048
     Dates: start: 1999, end: 2000
  20. METOPROLOL. [Concomitant]
     Active Substance: METOPROLOL
  21. HYDROCODONE, PARACETAMOL [Concomitant]
     Active Substance: ACETAMINOPHEN\HYDROCODONE
  22. DENOSUMAB [Concomitant]
     Active Substance: DENOSUMAB
  23. NEXIUM [Suspect]
     Active Substance: ESOMEPRAZOLE MAGNESIUM
     Route: 048
     Dates: start: 2004, end: 2014
  24. DEXAMETHASONE. [Concomitant]
     Active Substance: DEXAMETHASONE
  25. NEXIUM [Suspect]
     Active Substance: ESOMEPRAZOLE MAGNESIUM
     Dosage: GENERIC
     Route: 048
     Dates: start: 2015, end: 2017

REACTIONS (5)
  - Chronic kidney disease [Not Recovered/Not Resolved]
  - Renal failure [Unknown]
  - Nephrogenic anaemia [Unknown]
  - Acute kidney injury [Unknown]
  - End stage renal disease [Unknown]

NARRATIVE: CASE EVENT DATE: 2007
